FAERS Safety Report 9121508 (Version 2)
Quarter: 2013Q2

REPORT INFORMATION
  Report Type: Spontaneous
  Country: US (occurrence: US)
  Receive Date: 20130103
  Receipt Date: 20130409
  Transmission Date: 20140414
  Serious: Yes (Other)
  Sender: FDA-Public Use
  Company Number: US-RB-020071-10

PATIENT
  Age: 25 Year
  Sex: Female

DRUGS (5)
  1. SUBOXONE UNSPECIFIED [Suspect]
     Indication: PRODUCT USED FOR UNKNOWN INDICATION
     Dosage: SUBOXONE 8/2 MG
     Route: 060
     Dates: start: 200901, end: 201011
  2. SUBUTEX [Suspect]
     Route: 060
     Dates: start: 20100225, end: 20100823
  3. SUBUTEX [Suspect]
     Indication: PRODUCT USED FOR UNKNOWN INDICATION
     Route: 065
     Dates: start: 201011, end: 201110
  4. NICOTINE [Suspect]
     Indication: PRODUCT USED FOR UNKNOWN INDICATION
     Dosage: UNKNOWN DOSING DETAILS, IT WAS REPORTED THE PATIENT SMOKED 1/2 PACK PER DAY OF CIGARETTES
  5. PRENATALS [Concomitant]
     Indication: PRODUCT USED FOR UNKNOWN INDICATION
     Dosage: DOSING DETAILS UNKNOWN
     Route: 065

REACTIONS (3)
  - Exposure during pregnancy [Recovered/Resolved]
  - High risk pregnancy [Recovered/Resolved]
  - Premature delivery [Recovered/Resolved]
